FAERS Safety Report 8577451-7 (Version None)
Quarter: 2012Q3

REPORT INFORMATION
  Report Type: 
  Country: None (occurrence: None)
  Receive Date: 20120807
  Receipt Date: 20120801
  Transmission Date: 20120928
  Serious: Yes (Hospitalization, Other)
  Sender: FDA-Public Use
  Company Number: ES-PFIZER INC-2012186458

PATIENT
  Age: 89 Year
  Sex: Female

DRUGS (4)
  1. VENLAFAXINE HCL [Suspect]
     Indication: DEPRESSION
     Dosage: 225 MG, 1X/DAY
     Route: 048
     Dates: start: 20031201
  2. ASPIRIN [Concomitant]
     Indication: PROPHYLAXIS
     Dosage: 300 MG, 1X/DAY
     Route: 048
     Dates: start: 20080501, end: 20090427
  3. PRINIVIL [Interacting]
     Indication: HYPERTENSION
     Dosage: 20 MG, 1X/DAY
     Route: 048
     Dates: start: 20030101, end: 20090427
  4. LORAZEPAM [Concomitant]
     Dosage: 2.5 MG, UNK
     Route: 048
     Dates: start: 20030101

REACTIONS (9)
  - DIVERTICULUM OESOPHAGEAL [None]
  - DRUG INTERACTION [None]
  - HYPERTENSION [None]
  - GASTRIC DISORDER [None]
  - HAEMOGLOBIN DECREASED [None]
  - DYSPNOEA EXERTIONAL [None]
  - HAEMATOCRIT DECREASED [None]
  - HYPONATRAEMIA [None]
  - DIARRHOEA [None]
